FAERS Safety Report 15294993 (Version 1)
Quarter: 2018Q3

REPORT INFORMATION
  Report Type: Spontaneous
  Country: US (occurrence: US)
  Receive Date: 20180807
  Receipt Date: 20180807
  Transmission Date: 20181010
  Serious: Yes (Other)
  Sender: FDA-Public Use
  Company Number: None

PATIENT
  Age: 60 Year
  Sex: Male
  Weight: 58.97 kg

DRUGS (1)
  1. INVANZ [Suspect]
     Active Substance: ERTAPENEM SODIUM
     Indication: OTORRHOEA
     Route: 042
     Dates: start: 20180731, end: 20180806

REACTIONS (1)
  - Seizure [None]

NARRATIVE: CASE EVENT DATE: 20180806
